FAERS Safety Report 6807361-4 (Version None)
Quarter: 2010Q2

REPORT INFORMATION
  Report Type: 
  Country: None (occurrence: None)
  Receive Date: 20100629
  Receipt Date: 20080918
  Transmission Date: 20101027
  Serious: No
  Sender: FDA-Public Use
  Company Number: US-PFIZER INC-2008073325

PATIENT
  Sex: Male
  Weight: 75 kg

DRUGS (5)
  1. VIAGRA [Suspect]
     Indication: LIBIDO DISORDER
     Route: 048
     Dates: start: 20080801
  2. LOVASTATIN [Concomitant]
     Indication: BLOOD CHOLESTEROL INCREASED
  3. ACETYLSALICYLIC ACID [Concomitant]
  4. FISH OIL [Concomitant]
  5. CENTRUM SILVER [Concomitant]

REACTIONS (1)
  - DRUG INEFFECTIVE [None]
